FAERS Safety Report 13264725 (Version 1)
Quarter: 2017Q1

REPORT INFORMATION
  Report Type: Report from Study
  Country: DK (occurrence: DK)
  Receive Date: 20170223
  Receipt Date: 20170223
  Transmission Date: 20170428
  Serious: Yes (Hospitalization)
  Sender: FDA-Public Use
  Company Number: DK-ASTRAZENECA-2017SE17748

PATIENT
  Age: 13 Year
  Sex: Female

DRUGS (1)
  1. QUETIAPINE. [Suspect]
     Active Substance: QUETIAPINE
     Indication: PSYCHOTIC DISORDER
     Route: 048

REACTIONS (4)
  - Product use issue [Unknown]
  - Tachycardia [Not Recovered/Not Resolved]
  - Off label use [Unknown]
  - Cerebral haemorrhage [Not Recovered/Not Resolved]
